FAERS Safety Report 6202162-2 (Version None)
Quarter: 2009Q2

REPORT INFORMATION
  Report Type: 
  Country: None (occurrence: None)
  Receive Date: 20090526
  Receipt Date: 20090521
  Transmission Date: 20091009
  Serious: Yes (Life-Threatening)
  Sender: FDA-Public Use
  Company Number: JP-ELI_LILLY_AND_COMPANY-JP200904000005

PATIENT
  Sex: Female
  Weight: 49 kg

DRUGS (5)
  1. GEMZAR [Suspect]
     Indication: PANCREATIC CARCINOMA STAGE I
     Dosage: 1400 MG, OTHER
     Route: 042
     Dates: start: 20090218, end: 20090325
  2. BERIZYM [Concomitant]
     Dosage: 3 G, DAILY (1/D)
     Route: 048
     Dates: start: 20090204
  3. BIO THREE [Concomitant]
     Dosage: 3 D/F, DAILY (1/D)
     Route: 048
     Dates: start: 20090204
  4. PANCREATIN [Concomitant]
     Dosage: 3 G, DAILY (1/D)
     Route: 048
     Dates: start: 20090204
  5. ARTIST [Concomitant]
     Route: 048

REACTIONS (1)
  - ACUTE MYOCARDIAL INFARCTION [None]
